FAERS Safety Report 5786187-7 (Version None)
Quarter: 2008Q2

REPORT INFORMATION
  Report Type: 
  Country: None (occurrence: None)
  Receive Date: 20080624
  Receipt Date: 20080617
  Transmission Date: 20081010
  Serious: Yes (Other)
  Sender: FDA-Public Use
  Company Number: B0516217A

PATIENT
  Sex: Female
  Weight: 67 kg

DRUGS (2)
  1. TYVERB [Suspect]
     Indication: BREAST CANCER
     Dosage: 1250MG PER DAY
     Route: 048
     Dates: start: 20070902, end: 20071018
  2. XELODA [Concomitant]
     Indication: BREAST CANCER
     Dosage: 2000MGM2 PER DAY
     Route: 048
     Dates: start: 20070902, end: 20071025

REACTIONS (3)
  - DIARRHOEA [None]
  - HEPATIC ENZYME INCREASED [None]
  - HEPATOTOXICITY [None]
